FAERS Safety Report 7541388-2 (Version None)
Quarter: 2011Q2

REPORT INFORMATION
  Report Type: 
  Country: None (occurrence: None)
  Receive Date: 20110613
  Receipt Date: 20110601
  Transmission Date: 20111010
  Serious: Yes (Other)
  Sender: FDA-Public Use
  Company Number: CH-BIOGENIDEC-2011BI020426

PATIENT
  Age: 58 Year
  Sex: Female

DRUGS (2)
  1. AVONEX [Suspect]
     Indication: MULTIPLE SCLEROSIS
     Dates: start: 20050917
  2. PARACETAMOLE [Concomitant]
     Route: 048
     Dates: start: 20050917

REACTIONS (2)
  - HERPES ZOSTER [None]
  - THYROIDECTOMY [None]
